FAERS Safety Report 19233003 (Version 1)
Quarter: 2021Q2

REPORT INFORMATION
  Report Type: Spontaneous
  Country: US (occurrence: US)
  Receive Date: 20210507
  Receipt Date: 20210507
  Transmission Date: 20210717
  Serious: Yes (Death, Other)
  Sender: FDA-Public Use
  Company Number: US-FRESENIUS KABI-FK202104559

PATIENT
  Age: 58 Year
  Sex: Male

DRUGS (4)
  1. CYTARABINE (MANUFACTURER UNKNOWN) [Suspect]
     Active Substance: CYTARABINE
     Indication: ACUTE MYELOID LEUKAEMIA
     Dosage: HIGH?DOSE CYTOSINE ARABINOSIDE?PART OF FLAG?IDA THERAPY
     Route: 065
  2. IDARUBICIN HYDROCHLORIDE (MANUFACTURER UNKNOWN) [Suspect]
     Active Substance: IDARUBICIN HYDROCHLORIDE
     Indication: ACUTE MYELOID LEUKAEMIA
     Dosage: PART OF FLAG?IDA THERAPY
     Route: 065
  3. GRANULOCYTE COLONY STIMULATING FACTOR [Concomitant]
     Active Substance: GRANULOCYTE COLONY-STIMULATING FACTOR NOS
     Indication: PRODUCT USED FOR UNKNOWN INDICATION
     Dosage: GRANULOCYTE COLONY STIMULATING FACTOR (G?CSF) (PART OF FLAG?IDA THERAPY)
     Route: 065
  4. FLUDARABINE [Suspect]
     Active Substance: FLUDARABINE PHOSPHATE
     Indication: ACUTE MYELOID LEUKAEMIA
     Dosage: PART OF FLAG?IDA THERAPY
     Route: 065

REACTIONS (3)
  - Bacteraemia [Unknown]
  - Septic shock [Fatal]
  - Sepsis [Unknown]
